FAERS Safety Report 15946387 (Version 1)
Quarter: 2019Q1

REPORT INFORMATION
  Report Type: Spontaneous
  Country: US (occurrence: US)
  Receive Date: 20190211
  Receipt Date: 20190211
  Transmission Date: 20190417
  Serious: Yes (Other)
  Sender: FDA-Public Use
  Company Number: US-PFIZER INC-2019056110

PATIENT
  Age: 8 Year
  Sex: Male

DRUGS (2)
  1. GENOTROPIN [Suspect]
     Active Substance: SOMATROPIN
     Indication: GENE MUTATION
     Dosage: 1 MG, DAILY
     Dates: end: 2018
  2. GENOTROPIN [Suspect]
     Active Substance: SOMATROPIN
     Indication: CYTOGENETIC ABNORMALITY
     Dosage: 1 MG, DAILY
     Dates: start: 201602, end: 2017

REACTIONS (6)
  - Insulin-like growth factor decreased [Unknown]
  - Thyroxine free increased [Unknown]
  - Blood urea nitrogen/creatinine ratio increased [Unknown]
  - Thyroxine free decreased [Unknown]
  - Product use in unapproved indication [Unknown]
  - Blood thyroid stimulating hormone increased [Unknown]

NARRATIVE: CASE EVENT DATE: 201602
